FAERS Safety Report 5109030-8 (Version None)
Quarter: 2006Q3

REPORT INFORMATION
  Report Type: 
  Country: None (occurrence: None)
  Receive Date: 20060920
  Receipt Date: 20060830
  Transmission Date: 20061208
  Serious: Yes (Hospitalization)
  Sender: FDA-Public Use
  Company Number: US-BAYER-200615375BWH

PATIENT
  Age: 40 Year
  Sex: Male
  Weight: 104 kg

DRUGS (5)
  1. SORAFENIB [Suspect]
     Indication: BILE DUCT CANCER
     Dosage: TOTAL DAILY DOSE: 800 MG  UNIT DOSE: 200 MG
     Route: 048
     Dates: start: 20060124, end: 20060228
  2. GEMCITABINE [Suspect]
     Indication: BILE DUCT CANCER
     Dates: start: 20060328
  3. GEMCITABINE [Suspect]
     Dates: start: 20060404
  4. GEMCITABINE [Suspect]
     Dates: start: 20060425
  5. ZOLOFT [Concomitant]
     Indication: DEPRESSION
     Dates: end: 20060228

REACTIONS (8)
  - CONSTIPATION [None]
  - DEPRESSION [None]
  - DUODENAL PERFORATION [None]
  - HYPERBILIRUBINAEMIA [None]
  - LIVER ABSCESS [None]
  - LIVER CARCINOMA RUPTURED [None]
  - MALIGNANT NEOPLASM PROGRESSION [None]
  - PERITONITIS [None]
